FAERS Safety Report 7475390-6 (Version None)
Quarter: 2011Q2

REPORT INFORMATION
  Report Type: 
  Country: None (occurrence: None)
  Receive Date: 20110510
  Receipt Date: 20110510
  Transmission Date: 20111010
  Serious: Yes (Life-Threatening, Hospitalization, Other)
  Sender: FDA-Public Use
  Company Number: None

PATIENT
  Sex: Female
  Weight: 58.9676 kg

DRUGS (4)
  1. PREMARIN [Suspect]
     Indication: HYSTERECTOMY
     Dosage: 60 PILLS FOR 3 MONTHS 1 A DAY FOR ONLY 20 DAYS
     Dates: start: 20110219
  2. PREMARIN [Suspect]
     Indication: HYSTERECTOMY
     Dosage: 60 PILLS FOR 3 MONTHS 1 A DAY FOR ONLY 20 DAYS
     Dates: start: 20110220
  3. PREMARIN [Suspect]
     Indication: HYSTERECTOMY
     Dosage: 60 PILLS FOR 3 MONTHS 1 A DAY FOR ONLY 20 DAYS
     Dates: start: 20110301, end: 20110312
  4. PREMARIN [Suspect]
     Indication: HYSTERECTOMY
     Dosage: 60 PILLS FOR 3 MONTHS 1 A DAY FOR ONLY 20 DAYS
     Dates: start: 20110401

REACTIONS (14)
  - CHEST DISCOMFORT [None]
  - HEPATIC ENZYME ABNORMAL [None]
  - BLOOD ALKALINE PHOSPHATASE INCREASED [None]
  - VOMITING [None]
  - JAUNDICE [None]
  - PRODUCT QUALITY ISSUE [None]
  - PYREXIA [None]
  - DIZZINESS [None]
  - COLD SWEAT [None]
  - CHILLS [None]
  - NAUSEA [None]
  - INFLUENZA [None]
  - HEART RATE INCREASED [None]
  - CHROMATURIA [None]
